FAERS Safety Report 7817422-9 (Version None)
Quarter: 2011Q4

REPORT INFORMATION
  Report Type: 
  Country: None (occurrence: None)
  Receive Date: 20111013
  Receipt Date: 20111004
  Transmission Date: 20120403
  Serious: Yes (Life-Threatening, Hospitalization)
  Sender: FDA-Public Use
  Company Number: CLOF-1000089

PATIENT
  Age: 66 Year
  Sex: Female

DRUGS (6)
  1. EVOLTRA (CLOFARABINE) SOLUTION FOR INFUSION [Suspect]
     Indication: MYELOID LEUKAEMIA
     Dosage: 33 MG, QDX5, INTRAVENOUS 32 MG, QD,5, INTRAVENOUS
     Route: 042
     Dates: start: 20070825, end: 20070829
  2. EVOLTRA (CLOFARABINE) SOLUTION FOR INFUSION [Suspect]
     Indication: MYELOID LEUKAEMIA
     Dosage: 33 MG, QDX5, INTRAVENOUS 32 MG, QD,5, INTRAVENOUS
     Route: 042
     Dates: start: 20071002, end: 20071006
  3. MYLOTARG [Suspect]
     Indication: MYELOID LEUKAEMIA
     Dosage: 4.9 MG, ONCE, INTRAVENOUS
     Route: 042
     Dates: start: 20070825, end: 20070825
  4. DAUNORUBICIN HCL [Suspect]
     Indication: MYELOID LEUKAEMIA
     Dosage: 82 MG, TIW, INTRAVENOUS 80 MG, TIW, INTRAVENOUS
     Route: 042
     Dates: start: 20071002, end: 20071006
  5. DAUNORUBICIN HCL [Suspect]
     Indication: MYELOID LEUKAEMIA
     Dosage: 82 MG, TIW, INTRAVENOUS 80 MG, TIW, INTRAVENOUS
     Route: 042
     Dates: start: 20070825, end: 20070829
  6. AMLODIPINE [Concomitant]

REACTIONS (4)
  - BODY TEMPERATURE INCREASED [None]
  - SUBCLAVIAN VEIN THROMBOSIS [None]
  - NECK PAIN [None]
  - LOCAL SWELLING [None]
